FAERS Safety Report 9690398 (Version 2)
Quarter: 2013Q4

REPORT INFORMATION
  Report Type: Spontaneous
  Country: IT (occurrence: IT)
  Receive Date: 20131115
  Receipt Date: 20131115
  Transmission Date: 20140711
  Serious: Yes (Hospitalization)
  Sender: FDA-Public Use
  Company Number: IT-RANBAXY-2013RR-74915

PATIENT
  Age: 69 Year
  Sex: Female

DRUGS (4)
  1. NIMESULIDE [Suspect]
     Indication: ERYSIPELAS
     Dosage: 2 DF/DAY
     Route: 048
     Dates: start: 20131011, end: 20131012
  2. TEICOPLANIN [Interacting]
     Indication: ERYSIPELAS
     Dosage: 2 DF/DAY
     Route: 042
     Dates: start: 20131007, end: 20131014
  3. VALACICLOVIR [Interacting]
     Indication: HERPES ZOSTER
     Dosage: 3 DF/DAY
     Route: 048
     Dates: start: 20131008, end: 20131016
  4. PERFALGAN [Concomitant]
     Indication: HYPERPYREXIA
     Dosage: UNK
     Route: 042

REACTIONS (1)
  - Rash papular [Unknown]
